FAERS Safety Report 20420507 (Version 2)
Quarter: 2022Q1

REPORT INFORMATION
  Report Type: Spontaneous
  Country: JP (occurrence: JP)
  Receive Date: 20220203
  Receipt Date: 20220307
  Transmission Date: 20220423
  Serious: Yes (Death, Other)
  Sender: FDA-Public Use
  Company Number: JP-CHUGAI-2021028254

PATIENT
  Age: 66 Year
  Sex: Male
  Weight: 48.2 kg

DRUGS (9)
  1. TECENTRIQ [Suspect]
     Active Substance: ATEZOLIZUMAB
     Indication: Hepatocellular carcinoma
     Dosage: 1200 MILLIGRAM, ONCE/3WEEKS
     Route: 041
     Dates: start: 20210428, end: 20210726
  2. TECENTRIQ [Suspect]
     Active Substance: ATEZOLIZUMAB
     Dosage: 1200 MILLIGRAM, ONCE/3WEEKS
     Route: 041
     Dates: start: 20210921, end: 20211012
  3. AVASTIN [Suspect]
     Active Substance: BEVACIZUMAB
     Indication: Hepatocellular carcinoma
     Dosage: 700 MILLIGRAM
     Route: 041
     Dates: start: 20210428, end: 20210726
  4. AVASTIN [Suspect]
     Active Substance: BEVACIZUMAB
     Dosage: 700 MILLIGRAM, ONCE/3WEEKS
     Route: 041
     Dates: start: 20210921, end: 20211012
  5. NEXIUM [Concomitant]
     Active Substance: ESOMEPRAZOLE MAGNESIUM
     Route: 065
  6. SYMPROIC [Concomitant]
     Active Substance: NALDEMEDINE
     Route: 065
  7. NAPROXEN SODIUM [Concomitant]
     Active Substance: NAPROXEN SODIUM
     Route: 065
  8. FLUNITRAZEPAM [Concomitant]
     Active Substance: FLUNITRAZEPAM
     Route: 065
  9. OXYCONTIN [Concomitant]
     Active Substance: OXYCODONE HYDROCHLORIDE
     Route: 065

REACTIONS (2)
  - Interstitial lung disease [Fatal]
  - Pneumothorax spontaneous [Not Recovered/Not Resolved]

NARRATIVE: CASE EVENT DATE: 20211102
